FAERS Safety Report 22238411 (Version 1)
Quarter: 2023Q2

REPORT INFORMATION
  Report Type: Spontaneous
  Country: CN (occurrence: None)
  Receive Date: 20230421
  Receipt Date: 20230421
  Transmission Date: 20230721
  Serious: Yes (Other)
  Sender: FDA-Public Use
  Company Number: CN-SUPERNUS Pharmaceuticals, Inc.-ADM202304-001480

PATIENT
  Age: 52 Year
  Sex: Male

DRUGS (2)
  1. AMANTADINE HYDROCHLORIDE [Suspect]
     Active Substance: AMANTADINE HYDROCHLORIDE
     Indication: Nasopharyngitis
  2. ACETAMINOPHEN [Suspect]
     Active Substance: ACETAMINOPHEN
     Indication: Nasopharyngitis

REACTIONS (4)
  - Acquired epidermolysis bullosa [Recovered/Resolved]
  - Liver injury [Unknown]
  - Blood glucose increased [Unknown]
  - Product use in unapproved indication [Unknown]
